FAERS Safety Report 8484460-5 (Version None)
Quarter: 2012Q3

REPORT INFORMATION
  Report Type: 
  Country: None (occurrence: None)
  Receive Date: 20120703
  Receipt Date: 20120628
  Transmission Date: 20120928
  Serious: Yes (Other)
  Sender: FDA-Public Use
  Company Number: PHHY2012JP056160

PATIENT
  Age: 74 Year
  Sex: Female

DRUGS (1)
  1. ZOMETA [Suspect]
     Indication: METASTASES TO BONE
     Dosage: 4 MG (PER ADMINISTRATION)
     Route: 041
     Dates: start: 20110601, end: 20120601

REACTIONS (1)
  - OSTEONECROSIS OF JAW [None]
